FAERS Safety Report 6453200-3 (Version None)
Quarter: 2009Q4

REPORT INFORMATION
  Report Type: 
  Country: None (occurrence: None)
  Receive Date: 20091124
  Receipt Date: 20091118
  Transmission Date: 20100525
  Serious: Yes (Other)
  Sender: FDA-Public Use
  Company Number: FR-BRISTOL-MYERS SQUIBB COMPANY-14866115

PATIENT
  Age: 68 Year
  Sex: Male

DRUGS (9)
  1. COUMADIN [Suspect]
     Indication: DEEP VEIN THROMBOSIS
     Dosage: FROM APPROXIMATELY 20-APR-2009
     Route: 048
  2. VESANOID [Suspect]
     Indication: ACUTE PROMYELOCYTIC LEUKAEMIA
     Dosage: 1 DF = 1 CAPS 10MG SECOND INF:9JAN09; THIRD INF: APR09
     Route: 048
     Dates: start: 20091006
  3. INIPOMP [Concomitant]
     Route: 048
  4. LANTUS [Concomitant]
     Dosage: 1 DF = 100U/ML
     Route: 058
  5. PURINETHOL [Concomitant]
     Dosage: 1 DF = 1 TAB 50MG
     Route: 048
  6. COZAAR [Concomitant]
     Route: 048
  7. FUROSEMIDE [Concomitant]
     Route: 048
  8. XATRAL [Concomitant]
     Route: 048
  9. DIFFU-K [Concomitant]
     Dosage: FORM = CAPS
     Route: 048

REACTIONS (1)
  - HYPERTRIGLYCERIDAEMIA [None]
